FAERS Safety Report 13406470 (Version 5)
Quarter: 2017Q3

REPORT INFORMATION
  Report Type: Report from Study
  Country: FR (occurrence: FR)
  Receive Date: 20170405
  Receipt Date: 20170728
  Transmission Date: 20171127
  Serious: Yes (Death, Life-Threatening, Hospitalization, Other)
  Sender: FDA-Public Use
  Company Number: FR-BRISTOL-MYERS SQUIBB COMPANY-BMS-2016-002408

PATIENT
  Age: 66 Year
  Sex: Male
  Weight: 74 kg

DRUGS (31)
  1. NOVOMIX [Concomitant]
     Active Substance: INSULIN ASPART
     Indication: DIABETES MELLITUS
     Dosage: 12 IU, UNK
     Route: 065
     Dates: start: 2007, end: 20150307
  2. LASILIX                            /00032601/ [Concomitant]
     Active Substance: FUROSEMIDE
     Indication: ASCITES
     Route: 065
  3. AMLOR [Concomitant]
     Active Substance: AMLODIPINE BESYLATE
     Indication: PORTAL HYPERTENSIVE GASTROPATHY
     Dosage: 10 MG, QD
     Route: 065
     Dates: start: 201405, end: 20150407
  4. DUPHALAC [Concomitant]
     Active Substance: LACTULOSE
     Indication: CONSTIPATION
     Dosage: 20 G, UNK
     Route: 065
     Dates: start: 20150302, end: 20160518
  5. MACROGOL [Concomitant]
     Active Substance: POLYETHYLENE GLYCOLS
     Indication: CONSTIPATION
     Dosage: 1 DF, QD
     Route: 065
     Dates: start: 20160224, end: 20160518
  6. ENTECAVIR. [Suspect]
     Active Substance: ENTECAVIR
     Indication: HEPATITIS B
     Dosage: 0.5 MG, QD
     Route: 065
     Dates: start: 20140228, end: 20160318
  7. DACLATASVIR DIHYDROCHLORIDE [Suspect]
     Active Substance: DACLATASVIR DIHYDROCHLORIDE
     Indication: HEPATITIS C
     Dosage: 60 MG, QD
     Route: 065
     Dates: start: 20140428, end: 20140828
  8. TRIATEC                            /00116401/ [Concomitant]
     Active Substance: ACETAMINOPHEN\CODEINE PHOSPHATE
     Indication: PORTAL HYPERTENSIVE GASTROPATHY
     Dosage: 1.25 MG, QD
     Route: 065
     Dates: start: 20150424
  9. INEXIUM                            /01479302/ [Concomitant]
     Active Substance: ESOMEPRAZOLE MAGNESIUM
     Indication: GASTROOESOPHAGEAL REFLUX DISEASE
     Dosage: 40 MG, QD
     Route: 065
     Dates: start: 20160129, end: 20160518
  10. SOFOSBUVIR [Suspect]
     Active Substance: SOFOSBUVIR
     Indication: HEPATITIS C
     Dosage: 400 MG, UNK
     Route: 065
     Dates: start: 20140428, end: 20140828
  11. TERALITHE [Concomitant]
     Active Substance: LITHIUM CARBONATE
     Indication: BIPOLAR DISORDER
     Dosage: 250 MG, BID
     Route: 065
     Dates: start: 1987, end: 20150302
  12. L-THYROXINE                        /00068001/ [Concomitant]
     Active Substance: LEVOTHYROXINE
     Indication: HYPOTHYROIDISM
     Dosage: 0.15 MG, QD
     Route: 065
     Dates: start: 2012, end: 20160118
  13. INSPRA [Concomitant]
     Active Substance: EPLERENONE
     Indication: PROPHYLAXIS
     Dosage: 25 MG, QD
     Route: 065
     Dates: start: 20140524
  14. LASILIX                            /00032601/ [Concomitant]
     Active Substance: FUROSEMIDE
     Indication: OEDEMA PERIPHERAL
     Dosage: 60 MG, UNK
     Route: 065
     Dates: start: 2012, end: 20160318
  15. INSULIN [Concomitant]
     Active Substance: INSULIN NOS
     Indication: DIABETES MELLITUS
     Dosage: 1 DF, TID
     Route: 065
     Dates: start: 20160118, end: 20160518
  16. XEROQUEL [Concomitant]
     Active Substance: QUETIAPINE FUMARATE
     Indication: BIPOLAR DISORDER
     Dosage: 50 MG, QD
     Route: 065
     Dates: start: 20150302, end: 20160518
  17. DAFALGAN [Concomitant]
     Active Substance: ACETAMINOPHEN
     Indication: PAIN
     Dosage: 1500 MG, TID
     Route: 065
     Dates: start: 20160104, end: 20160518
  18. INSPRA [Concomitant]
     Active Substance: EPLERENONE
     Indication: OEDEMA PERIPHERAL
     Route: 065
  19. DEBRIDAT                           /00465201/ [Concomitant]
     Active Substance: TRIMEBUTINE MALEATE
     Indication: GASTROINTESTINAL PAIN
     Dosage: 100 MG, TID
     Route: 065
     Dates: start: 20160124, end: 20160518
  20. CARAFATE [Concomitant]
     Active Substance: SUCRALFATE
     Indication: GASTRODUODENAL ULCER
     Dosage: 1 G, UNK
     Route: 065
  21. CALCIPARINE [Suspect]
     Active Substance: HEPARIN CALCIUM
     Indication: RENAL FAILURE
     Dosage: 5000 IU, BID
     Route: 065
     Dates: start: 20160118, end: 20160518
  22. ANAFRANIL [Concomitant]
     Active Substance: CLOMIPRAMINE HYDROCHLORIDE
     Indication: BIPOLAR DISORDER
     Dosage: 25 MG, QD
     Route: 065
     Dates: start: 1996, end: 20150302
  23. PLAVIX [Concomitant]
     Active Substance: CLOPIDOGREL BISULFATE
     Indication: THROMBOSIS PROPHYLAXIS
     Dosage: 75 MG, QD
     Route: 065
     Dates: start: 20150506
  24. KARDEGIC [Concomitant]
     Active Substance: ASPIRIN LYSINE
     Indication: THROMBOSIS PROPHYLAXIS
     Dosage: 75 MG, QD
     Route: 065
     Dates: start: 20151026, end: 20160518
  25. TIXTAR [Concomitant]
     Active Substance: RIFAXIMIN
     Indication: HEPATIC ENCEPHALOPATHY
     Dosage: 550 MG, TID
     Route: 065
     Dates: start: 20151216, end: 20160518
  26. DIFFU K [Concomitant]
     Active Substance: POTASSIUM CHLORIDE
     Indication: HYPOKALAEMIA
     Dosage: 600 MG, QD
     Route: 065
     Dates: start: 20160129, end: 20160518
  27. UVEDOSE [Concomitant]
     Active Substance: CHOLECALCIFEROL
     Indication: VITAMIN D DEFICIENCY
     Dosage: 1 DF, QWK
     Route: 065
     Dates: start: 20160224, end: 20160518
  28. DEBRIDAT                           /00465202/ [Concomitant]
     Active Substance: TRIMEBUTINE
     Indication: GASTROINTESTINAL PAIN
     Dosage: 5000 IU, BID
     Route: 065
     Dates: start: 20160124, end: 20160518
  29. LASILIX                            /00032601/ [Concomitant]
     Active Substance: FUROSEMIDE
     Indication: PROPHYLAXIS
     Dosage: 20 MG, QD
     Route: 065
     Dates: start: 2012, end: 20160518
  30. LEVOTHYROX [Concomitant]
     Active Substance: LEVOTHYROXINE
     Indication: HYPOTHYROIDISM
     Dosage: 150 ?G, QD
     Route: 065
     Dates: start: 20160318, end: 20160518
  31. TIXTAR [Concomitant]
     Active Substance: RIFAXIMIN
     Indication: PROPHYLAXIS
     Route: 065

REACTIONS (15)
  - Haemodialysis [Unknown]
  - Haemoglobin decreased [Unknown]
  - Prostatitis [Unknown]
  - Hepatic encephalopathy [Recovering/Resolving]
  - Septic shock [Fatal]
  - Peritonitis [Unknown]
  - Gastrointestinal haemorrhage [Unknown]
  - Renal tubular necrosis [Unknown]
  - Pneumonia [Unknown]
  - Haematemesis [Unknown]
  - Acute kidney injury [Unknown]
  - Shock haemorrhagic [Fatal]
  - Hepatocellular carcinoma [Unknown]
  - Packed red blood cell transfusion [Unknown]
  - Anaemia [Recovered/Resolved]

NARRATIVE: CASE EVENT DATE: 20151013
